FAERS Safety Report 5528499-8 (Version None)
Quarter: 2007Q4

REPORT INFORMATION
  Report Type: 
  Country: None (occurrence: None)
  Receive Date: 20071128
  Receipt Date: 20071122
  Transmission Date: 20080405
  Serious: Yes (Hospitalization)
  Sender: FDA-Public Use
  Company Number: JP-MERCK-0708USA05853

PATIENT
  Age: 52 Year
  Sex: Male

DRUGS (13)
  1. PEPCID RPD [Suspect]
     Indication: GASTRITIS
     Route: 048
     Dates: start: 20030812
  2. PROGRAF [Suspect]
     Indication: MYASTHENIA GRAVIS
     Route: 048
     Dates: start: 20030911
  3. PROGRAF [Suspect]
     Route: 048
     Dates: end: 20051229
  4. COZAAR [Suspect]
     Indication: HYPERTENSION
     Route: 048
     Dates: start: 20030812
  5. PREDNISOLONE [Concomitant]
     Indication: MYASTHENIA GRAVIS
     Route: 048
     Dates: start: 20030812, end: 20031008
  6. PREDNISOLONE [Concomitant]
     Route: 048
     Dates: start: 20031009, end: 20031105
  7. PREDNISOLONE [Concomitant]
     Route: 048
     Dates: start: 20031106, end: 20031203
  8. PREDNISOLONE [Concomitant]
     Route: 048
     Dates: start: 20031204, end: 20040104
  9. PREDNISOLONE [Concomitant]
     Route: 048
     Dates: start: 20040105
  10. MESTINON [Concomitant]
     Route: 048
     Dates: end: 20030814
  11. MESTINON [Concomitant]
     Route: 048
     Dates: start: 20030815, end: 20030827
  12. NORVASC [Concomitant]
     Route: 048
     Dates: end: 20030911
  13. ALDACTONE [Concomitant]
     Route: 048
     Dates: start: 20030912, end: 20031008

REACTIONS (1)
  - COLITIS ULCERATIVE [None]
